FAERS Safety Report 17638910 (Version 1)
Quarter: 2020Q2

REPORT INFORMATION
  Report Type: Report from Study
  Country: ZA (occurrence: ZA)
  Receive Date: 20200407
  Receipt Date: 20200407
  Transmission Date: 20200713
  Serious: Yes (Other)
  Sender: FDA-Public Use
  Company Number: ZA-PFIZER INC-2020137016

PATIENT
  Age: 23 Year
  Sex: Female

DRUGS (20)
  1. LINEZOLID. [Suspect]
     Active Substance: LINEZOLID
     Indication: PULMONARY TUBERCULOSIS
     Dosage: 600 MG, 1X/DAY
     Route: 048
     Dates: start: 20190201, end: 20190408
  2. PYRIDOXINE [Concomitant]
     Active Substance: PYRIDOXINE
  3. LINEZOLID. [Suspect]
     Active Substance: LINEZOLID
     Dosage: 600 MG, 1X/DAY
     Route: 048
     Dates: start: 20190426
  4. DELAMANID [Suspect]
     Active Substance: DELAMANID
     Dosage: UNK
  5. TERIZIDONE [Suspect]
     Active Substance: TERIZIDONE
     Indication: PULMONARY TUBERCULOSIS
     Dosage: 500 MG, 1X/DAY
     Route: 048
     Dates: start: 20190301, end: 20190408
  6. TERIZIDONE [Suspect]
     Active Substance: TERIZIDONE
     Dosage: 500 MG, 1X/DAY
     Route: 048
  7. CLOFAZIMINE [Suspect]
     Active Substance: CLOFAZIMINE
     Dosage: 100 MG, 1X/DAY
     Route: 048
  8. CLOFAZIMINE [Suspect]
     Active Substance: CLOFAZIMINE
     Indication: PULMONARY TUBERCULOSIS
     Dosage: 100 MG, 1X/DAY
     Route: 048
     Dates: start: 20181207, end: 20190408
  9. ISONIAZIDE [Suspect]
     Active Substance: ISONIAZID
     Dosage: 600 MG, 1X/DAY
     Route: 048
  10. PYRAZINAMIDE. [Suspect]
     Active Substance: PYRAZINAMIDE
     Dosage: 1 G, 1X/DAY
     Route: 048
  11. RALTEGRAVIR. [Suspect]
     Active Substance: RALTEGRAVIR
  12. PYRAZINAMIDE. [Suspect]
     Active Substance: PYRAZINAMIDE
     Indication: PULMONARY TUBERCULOSIS
     Dosage: 1 G, 1X/DAY
     Route: 048
     Dates: start: 20181207, end: 20190408
  13. BEDAQUILINE [Suspect]
     Active Substance: BEDAQUILINE
     Indication: PULMONARY TUBERCULOSIS
     Dosage: 200 MG, 1X/DAY
     Route: 048
     Dates: start: 20181221, end: 20190408
  14. DELAMANID [Suspect]
     Active Substance: DELAMANID
     Indication: PULMONARY TUBERCULOSIS
     Dosage: 100 MG, 2X/DAY
     Route: 048
     Dates: start: 20181221, end: 20190408
  15. PAS [Suspect]
     Active Substance: AMINOSALICYLIC ACID
     Dosage: 8 G, 1X/DAY
     Route: 048
  16. TENOFOVIR DISOPROXIL FUMARATE. [Concomitant]
     Active Substance: TENOFOVIR DISOPROXIL FUMARATE
  17. ISONIAZIDE [Suspect]
     Active Substance: ISONIAZID
     Indication: PULMONARY TUBERCULOSIS
     Dosage: 600 MG, 1X/DAY
     Route: 048
     Dates: start: 20181207, end: 20190408
  18. BEDAQUILINE [Suspect]
     Active Substance: BEDAQUILINE
     Dosage: 200 MG, 1X/DAY
     Route: 048
  19. PAS [Suspect]
     Active Substance: AMINOSALICYLIC ACID
     Indication: PULMONARY TUBERCULOSIS
     Dosage: 8 G, 1X/DAY
     Route: 048
     Dates: start: 20190101, end: 20190408
  20. EMTRICITABINE [Concomitant]
     Active Substance: EMTRICITABINE

REACTIONS (2)
  - Drug-induced liver injury [Recovered/Resolved]
  - Anaemia [Recovered/Resolved]

NARRATIVE: CASE EVENT DATE: 20190402
